FAERS Safety Report 12351102 (Version 2)
Quarter: 2016Q2

REPORT INFORMATION
  Report Type: Spontaneous
  Country: BR (occurrence: BR)
  Receive Date: 20160510
  Receipt Date: 20160525
  Transmission Date: 20160815
  Serious: Yes (Hospitalization, Other)
  Sender: FDA-Public Use
  Company Number: BR-PFIZER INC-2016238105

PATIENT
  Age: 62 Year
  Sex: Female
  Weight: 70.6 kg

DRUGS (5)
  1. ADRIBLASTINA [Suspect]
     Active Substance: DOXORUBICIN HYDROCHLORIDE
     Indication: BREAST CANCER
     Dosage: 105.6 MG, EVERY 21 DAYS
     Route: 042
     Dates: start: 20160328
  2. OLCADIL [Concomitant]
     Active Substance: CLOXAZOLAM
     Dosage: 10 MG, 1X/DAY
  3. AMLODIPINE [Concomitant]
     Active Substance: AMLODIPINE BESYLATE
     Dosage: 5 MG, 1X/DAY
  4. GENUXAL [Suspect]
     Active Substance: CYCLOPHOSPHAMIDE
     Indication: BREAST CANCER
     Dosage: 1056 MG, EVERY 21 DAYS
     Route: 042
     Dates: start: 20160328
  5. AMITRIPTYLINE [Concomitant]
     Active Substance: AMITRIPTYLINE
     Dosage: 25 MG, 1X/DAY

REACTIONS (4)
  - Pyrexia [Recovered/Resolved]
  - Odynophagia [Recovered/Resolved]
  - Neutropenia [Recovered/Resolved]
  - Myalgia [Recovered/Resolved]

NARRATIVE: CASE EVENT DATE: 2016
